FAERS Safety Report 7214503-8 (Version None)
Quarter: 2011Q1

REPORT INFORMATION
  Report Type: 
  Country: None (occurrence: None)
  Receive Date: 20110107
  Receipt Date: 20101228
  Transmission Date: 20110831
  Serious: Yes (Other)
  Sender: FDA-Public Use
  Company Number: HR-SANOFI-AVENTIS-2010SA078243

PATIENT
  Age: 74 Year
  Sex: Male

DRUGS (14)
  1. CONCOR [Interacting]
     Indication: HYPERTENSION
     Route: 048
     Dates: start: 20010101
  2. AMLODIPINE BESYLATE [Concomitant]
     Indication: HYPERTENSION
     Route: 048
     Dates: start: 20010101
  3. ALLOPURINOL [Interacting]
     Indication: GOUT
     Route: 048
     Dates: start: 20080101
  4. ASPIRIN [Interacting]
     Indication: ATRIAL FIBRILLATION
     Route: 048
     Dates: start: 20050101, end: 20101101
  5. ATACAND HCT [Suspect]
     Route: 048
     Dates: start: 20080101, end: 20101101
  6. CORDARONE [Interacting]
     Indication: ATRIAL FIBRILLATION
     Route: 048
     Dates: start: 20101025, end: 20101103
  7. AMOXICILLIN AND CLAVULANATE POTASSIUM [Interacting]
     Dates: start: 20101001, end: 20101001
  8. NOVOMIX [Concomitant]
     Indication: DIABETES MELLITUS
     Route: 058
     Dates: start: 20101025
  9. AZITHROMYCIN [Interacting]
     Dates: start: 20101001, end: 20101001
  10. MOXONIDINE [Concomitant]
     Indication: HYPERTENSION
     Route: 048
     Dates: start: 20080101
  11. CLEXANE [Suspect]
     Indication: ATRIAL FIBRILLATION
     Route: 042
     Dates: start: 20101020, end: 20101108
  12. NOVOCEF [Interacting]
     Indication: PNEUMONIA
     Route: 048
     Dates: start: 20101030, end: 20101108
  13. WARFARIN SODIUM [Interacting]
     Dates: start: 20101025, end: 20101101
  14. FUROSEMIDE [Interacting]
     Route: 048
     Dates: start: 20070101, end: 20101101

REACTIONS (5)
  - DRUG INTERACTION [None]
  - BLOOD CREATININE INCREASED [None]
  - PROTHROMBIN TIME SHORTENED [None]
  - LEUKOPENIA [None]
  - OLIGURIA [None]
